FAERS Safety Report 6248568-7 (Version None)
Quarter: 2009Q2

REPORT INFORMATION
  Report Type: 
  Country: None (occurrence: None)
  Receive Date: 20090629
  Receipt Date: 20090618
  Transmission Date: 20091009
  Serious: Yes (Hospitalization)
  Sender: FDA-Public Use
  Company Number: US-NOVOPROD-285254

PATIENT
  Sex: Female
  Weight: 89.342 kg

DRUGS (6)
  1. NOVOLOG [Suspect]
     Indication: TYPE 1 DIABETES MELLITUS
     Dosage: SLIDING SCALE IU, QID
     Route: 058
     Dates: start: 20090301, end: 20090501
  2. HUMULIN R [Suspect]
     Indication: TYPE 1 DIABETES MELLITUS
     Dosage: SLIDING SCALE U, PRN
     Route: 058
     Dates: end: 20090501
  3. CYMBALTA [Concomitant]
     Indication: DRUG USE FOR UNKNOWN INDICATION
  4. SIMVASTIN [Concomitant]
     Indication: DRUG USE FOR UNKNOWN INDICATION
  5. NEUROTIN                           /00949202/ [Concomitant]
     Indication: DRUG USE FOR UNKNOWN INDICATION
  6. INDERAL                            /00030001/ [Concomitant]
     Indication: DRUG USE FOR UNKNOWN INDICATION

REACTIONS (5)
  - BLOOD GLUCOSE INCREASED [None]
  - BLOOD PRESSURE INCREASED [None]
  - HYPERHIDROSIS [None]
  - HYPOGLYCAEMIC SEIZURE [None]
  - TACHYCARDIA [None]
